FAERS Safety Report 4568245-8 (Version None)
Quarter: 2005Q1

REPORT INFORMATION
  Report Type: 
  Country: None (occurrence: None)
  Receive Date: 20050202
  Receipt Date: 20041217
  Transmission Date: 20050727
  Serious: Yes (Other)
  Sender: FDA-Public Use
  Company Number: PHNU2004DE04255

PATIENT
  Age: 28 Year
  Sex: Male
  Weight: 88 kg

DRUGS (3)
  1. LEPONEX / CLOZARIL (CLOZAPINE) [Suspect]
     Indication: PSYCHOTIC DISORDER
     Dosage: 50 MG/DAY
     Route: 048
     Dates: start: 20000101
  2. LEPONEX / CLOZARIL (CLOZAPINE) [Suspect]
     Dosage: 25 MG/DAY
     Route: 048
  3. LEPONEX / CLOZARIL (CLOZAPINE) [Suspect]
     Dosage: 400 MG/DAY
     Route: 048
     Dates: start: 19970101

REACTIONS (1)
  - B-CELL LYMPHOMA [None]
